FAERS Safety Report 23651361 (Version 1)
Quarter: 2024Q1

REPORT INFORMATION
  Report Type: Spontaneous
  Country: FR (occurrence: FR)
  Receive Date: 20240320
  Receipt Date: 20240320
  Transmission Date: 20240410
  Serious: Yes (Hospitalization, Other)
  Sender: FDA-Public Use
  Company Number: FR-GLAXOSMITHKLINE-FR2024036040

PATIENT

DRUGS (13)
  1. VALACYCLOVIR HYDROCHLORIDE [Suspect]
     Active Substance: VALACYCLOVIR HYDROCHLORIDE
     Indication: Antiviral prophylaxis
     Dosage: 1000 MG, QD
     Route: 048
     Dates: start: 20240227, end: 20240229
  2. ATOVAQUONE [Suspect]
     Active Substance: ATOVAQUONE
     Indication: Antifungal prophylaxis
     Dosage: 1500 MG, QD
     Route: 048
     Dates: start: 20240227, end: 20240229
  3. VIREAD [Suspect]
     Active Substance: TENOFOVIR DISOPROXIL FUMARATE
     Indication: Hepatitis B virus test positive
     Dosage: 245 MG, QD
     Route: 048
     Dates: start: 20240226, end: 20240301
  4. OXALIPLATIN [Suspect]
     Active Substance: OXALIPLATIN
     Indication: Angiocentric lymphoma
     Dosage: 235 MG SINGLE
     Route: 042
     Dates: start: 20240228, end: 20240228
  5. ALLOPURINOL [Suspect]
     Active Substance: ALLOPURINOL
     Indication: Cytokine release syndrome
     Dosage: 300 MG, QD
     Route: 048
     Dates: start: 20240223, end: 20240301
  6. METHOTREXATE [Suspect]
     Active Substance: METHOTREXATE
     Indication: Angiocentric lymphoma
     Dosage: 4100 MG SINGLE
     Route: 042
     Dates: start: 20240227, end: 20240227
  7. ONCASPAR [Suspect]
     Active Substance: PEGASPARGASE
     Indication: Angiocentric lymphoma
     Dosage: 3600 IU SINGLE
     Route: 042
     Dates: start: 20240228, end: 20240228
  8. IVERMECTIN [Suspect]
     Active Substance: IVERMECTIN
     Indication: Parasitic infection prophylaxis
     Dosage: 12 MG SINGLE
     Route: 048
     Dates: start: 20240226, end: 20240226
  9. DEXAMETHASONE [Suspect]
     Active Substance: DEXAMETHASONE
     Indication: Angiocentric lymphoma
     Dosage: 40 MG, QD
     Route: 048
     Dates: start: 20240227, end: 20240228
  10. ONDANSETRON [Concomitant]
     Active Substance: ONDANSETRON
     Indication: Product used for unknown indication
     Dosage: 16 MG, QD
     Route: 042
     Dates: start: 20240227
  11. FOLIC ACID [Concomitant]
     Active Substance: FOLIC ACID
     Indication: Product used for unknown indication
     Dosage: 5 MG, QD
     Route: 048
     Dates: start: 20240227
  12. LOVENOX [Concomitant]
     Active Substance: ENOXAPARIN SODIUM
     Indication: Product used for unknown indication
     Dosage: 1 DF, QD
     Route: 058
     Dates: start: 20240226
  13. GEMCITABINE [Concomitant]
     Active Substance: GEMCITABINE
     Indication: Product used for unknown indication
     Dosage: 820 MG SINGLE
     Route: 042
     Dates: start: 20240227, end: 20240227

REACTIONS (1)
  - Hepatic cytolysis [Recovered/Resolved]

NARRATIVE: CASE EVENT DATE: 20240229
